FAERS Safety Report 12449453 (Version 2)
Quarter: 2016Q3

REPORT INFORMATION
  Report Type: Spontaneous
  Country: SE (occurrence: SE)
  Receive Date: 20160608
  Receipt Date: 20160831
  Transmission Date: 20161109
  Serious: Yes (Congenital Anomaly)
  Sender: FDA-Public Use
  Company Number: SE-BIOGEN-2016BI00246022

PATIENT
  Age: 1 Month
  Sex: Male

DRUGS (1)
  1. TECFIDERA [Suspect]
     Active Substance: DIMETHYL FUMARATE
     Indication: RELAPSING-REMITTING MULTIPLE SCLEROSIS
     Route: 064
     Dates: start: 20140908, end: 20150715

REACTIONS (2)
  - Deafness congenital [Not Recovered/Not Resolved]
  - Foetal exposure timing unspecified [Recovered/Resolved]

NARRATIVE: CASE EVENT DATE: 20160504
